FAERS Safety Report 4355807-6 (Version None)
Quarter: 2004Q2

REPORT INFORMATION
  Report Type: 
  Country: None (occurrence: None)
  Receive Date: 20040510
  Receipt Date: 20040510
  Transmission Date: 20050107
  Serious: Yes (Hospitalization)
  Sender: FDA-Public Use
  Company Number: None

PATIENT
  Age: 85 Year
  Sex: Female
  Weight: 79 kg

DRUGS (1)
  1. FAMCICLOVIR [Suspect]
     Indication: HERPES VIRUS INFECTION
     Dosage: PRE ADMISSION
     Dates: start: 20040419, end: 20040422

REACTIONS (4)
  - CONFUSIONAL STATE [None]
  - GRAND MAL CONVULSION [None]
  - MENTAL STATUS CHANGES [None]
  - SOMNOLENCE [None]
